FAERS Safety Report 6056672-1 (Version None)
Quarter: 2009Q1

REPORT INFORMATION
  Report Type: 
  Country: None (occurrence: None)
  Receive Date: 20090126
  Receipt Date: 20090126
  Transmission Date: 20090719
  Serious: Yes (Other)
  Sender: FDA-Public Use
  Company Number: None

PATIENT
  Weight: 87.5442 kg

DRUGS (2)
  1. VENTOLIN HFA [Suspect]
     Indication: ASTHMA
     Dosage: 1 SPRAY 10 TIMES PER DAY 2 DAYS
     Route: 055
     Dates: start: 20090114
  2. VENTOLIN HFA [Suspect]
     Indication: ASTHMA
     Dosage: 1 SPRAY 10 TIMES PER DAY 2 DAYS
     Route: 055
     Dates: start: 20090115

REACTIONS (3)
  - DEVICE INEFFECTIVE [None]
  - DRUG INEFFECTIVE [None]
  - PRODUCT QUALITY ISSUE [None]
